FAERS Safety Report 24978851 (Version 2)
Quarter: 2025Q1

REPORT INFORMATION
  Report Type: Report from Study
  Country: PL (occurrence: PL)
  Receive Date: 20250218
  Receipt Date: 20250221
  Transmission Date: 20250408
  Serious: Yes (Other)
  Sender: AUROBINDO
  Company Number: PL-POLPHARMA-PPH6901042

PATIENT
  Age: 81 Year
  Sex: Female

DRUGS (7)
  1. RIVAROXABAN [Interacting]
     Active Substance: RIVAROXABAN
     Indication: Atrial fibrillation
     Dosage: 15 MILLIGRAM, ONCE A DAY [15 MG O.D.]
     Route: 065
  2. LEVETIRACETAM [Interacting]
     Active Substance: LEVETIRACETAM
     Indication: Epilepsy
     Dosage: 4500 MILLIGRAM, ONCE A DAY
     Route: 065
  3. LEVETIRACETAM [Interacting]
     Active Substance: LEVETIRACETAM
     Dosage: 3000 MILLIGRAM, ONCE A DAY
     Route: 065
  4. OXCARBAZEPINE [Interacting]
     Active Substance: OXCARBAZEPINE
     Indication: Epilepsy
     Dosage: 900 MILLIGRAM, ONCE A DAY
     Route: 065
  5. VALSARTAN [Concomitant]
     Active Substance: VALSARTAN
     Indication: Product used for unknown indication
     Route: 065
  6. THYROXINE [Concomitant]
     Active Substance: LEVOTHYROXINE
     Indication: Product used for unknown indication
     Route: 065
  7. FUROSEMIDE [Concomitant]
     Active Substance: FUROSEMIDE
     Indication: Product used for unknown indication
     Route: 065

REACTIONS (6)
  - Seizure [Unknown]
  - Epilepsy [Unknown]
  - Drug interaction [Unknown]
  - Anticoagulation drug level decreased [Unknown]
  - Drug level below therapeutic [Unknown]
  - Potentiating drug interaction [Unknown]
